FAERS Safety Report 6062485-7 (Version None)
Quarter: 2009Q1

REPORT INFORMATION
  Report Type: 
  Country: None (occurrence: None)
  Receive Date: 20090202
  Receipt Date: 20090202
  Transmission Date: 20090719
  Serious: No
  Sender: FDA-Public Use
  Company Number: None

PATIENT
  Sex: Female
  Weight: 90.7194 kg

DRUGS (2)
  1. LYRICA [Suspect]
     Indication: FIBROMYALGIA
     Dates: start: 20070201, end: 20070430
  2. LYRICA [Suspect]
     Indication: LUMBAR SPINAL STENOSIS
     Dates: start: 20070201, end: 20070430

REACTIONS (2)
  - APHASIA [None]
  - SPEECH DISORDER [None]
